FAERS Safety Report 8999255 (Version 1)
Quarter: 2013Q1

REPORT INFORMATION
  Report Type: Spontaneous
  Country: CO (occurrence: CO)
  Receive Date: 20130103
  Receipt Date: 20130103
  Transmission Date: 20140127
  Serious: Yes (Other)
  Sender: FDA-Public Use
  Company Number: CO-PFIZER INC-2012334225

PATIENT
  Age: 11 Year
  Sex: Female

DRUGS (2)
  1. GENOTROPIN [Suspect]
     Indication: BODY HEIGHT BELOW NORMAL
     Dosage: 1.7 MG, UNK
     Route: 058
     Dates: start: 2010, end: 201209
  2. GENOTROPIN [Suspect]
     Dosage: UNK

REACTIONS (4)
  - Thyroid disorder [Unknown]
  - Cystitis [Unknown]
  - Constipation [Unknown]
  - Off label use [Unknown]
